FAERS Safety Report 16419923 (Version 1)
Quarter: 2019Q2

REPORT INFORMATION
  Report Type: Spontaneous
  Country: US (occurrence: US)
  Receive Date: 20190612
  Receipt Date: 20190612
  Transmission Date: 20190711
  Serious: No
  Sender: FDA-Public Use
  Company Number: US-TEVA-2019-US-1063024

PATIENT
  Age: 42 Year
  Sex: Female

DRUGS (1)
  1. AJOVY [Suspect]
     Active Substance: FREMANEZUMAB-VFRM
     Indication: MIGRAINE
     Dosage: THE REPORTER ^BELIEVED IT WAS THE MONTHLY INJECTION^
     Route: 065
     Dates: start: 2019

REACTIONS (3)
  - Rash generalised [Recovered/Resolved]
  - Pruritus [Recovered/Resolved]
  - Dysgeusia [Unknown]
